FAERS Safety Report 10438439 (Version 1)
Quarter: 2014Q3

REPORT INFORMATION
  Report Type: Spontaneous
  Country: US (occurrence: None)
  Receive Date: 20140904
  Receipt Date: 20140904
  Transmission Date: 20150326
  Serious: Yes (Hospitalization, Other)
  Sender: FDA-Public Use
  Company Number: 2006S1004054

PATIENT
  Age: 57 Year
  Sex: Male
  Weight: 73.5 kg

DRUGS (8)
  1. NIFEREX (FERROGLYCINE SULFATE COMPLEX) [Concomitant]
  2. PHOSPHO-SODA [Suspect]
     Active Substance: SODIUM PHOSPHATE, DIBASIC\SODIUM PHOSPHATE, MONOBASIC
     Indication: COLONOSCOPY
     Dosage: 1 IN TOTAL, ORAL
     Route: 048
     Dates: start: 20040711, end: 20040711
  3. FLEET [Suspect]
     Active Substance: BISACODYL\GLYCERIN\MINERAL OIL\SODIUM PHOSPHATE, DIBASIC\SODIUM PHOSPHATE, MONOBASIC
     Indication: COLONOSCOPY
     Dosage: 1 IN TOTAL, RECTAL
     Route: 054
     Dates: start: 20040712
  4. DULCOLAX (BISACODYL) [Suspect]
     Active Substance: BISACODYL
     Route: 048
     Dates: start: 20040711, end: 20040711
  5. ZETIA [Concomitant]
     Active Substance: EZETIMIBE
  6. KLONOPIN [Concomitant]
     Active Substance: CLONAZEPAM
  7. HYDROCHLOROTHIAZIDE (HYDROCHLOROTHIAZIDE) [Concomitant]
     Active Substance: HYDROCHLOROTHIAZIDE
  8. VERAPAMIL [Concomitant]
     Active Substance: VERAPAMIL HYDROCHLORIDE

REACTIONS (22)
  - Nephrosclerosis [None]
  - Dyspnoea [None]
  - Pleural effusion [None]
  - Hyperphosphataemia [None]
  - Haematoma [None]
  - Seroma [None]
  - Nephrogenic anaemia [None]
  - Azotaemia [None]
  - Accelerated hypertension [None]
  - Renal neoplasm [None]
  - Anaemia [None]
  - Gastritis [None]
  - Renal transplant [None]
  - Hiatus hernia [None]
  - Pyelonephritis chronic [None]
  - Nephrolithiasis [None]
  - Hypertensive crisis [None]
  - Erosive oesophagitis [None]
  - Renal cyst [None]
  - Myocardial infarction [None]
  - Renal failure chronic [None]
  - Renal failure acute [None]

NARRATIVE: CASE EVENT DATE: 200410
